FAERS Safety Report 21517197 (Version 2)
Quarter: 2023Q2

REPORT INFORMATION
  Report Type: Spontaneous
  Country: US (occurrence: US)
  Receive Date: 20221028
  Receipt Date: 20230411
  Transmission Date: 20230722
  Serious: Yes (Life-Threatening, Hospitalization, Other)
  Sender: FDA-Public Use
  Company Number: US-LUPIN PHARMACEUTICALS INC.-2022-12359

PATIENT
  Age: 27 Year
  Sex: Female

DRUGS (25)
  1. QUETIAPINE FUMARATE [Suspect]
     Active Substance: QUETIAPINE FUMARATE
     Indication: Intensive care unit delirium
     Dosage: 50 MG, UNK
     Route: 065
  2. QUETIAPINE FUMARATE [Suspect]
     Active Substance: QUETIAPINE FUMARATE
     Dosage: 200 MG, UNK
     Route: 065
  3. SERTRALINE [Suspect]
     Active Substance: SERTRALINE HYDROCHLORIDE
     Indication: Intensive care unit delirium
     Dosage: UNK
     Route: 065
  4. OXYCODONE [Suspect]
     Active Substance: OXYCODONE
     Indication: Intensive care unit delirium
     Dosage: 20 MG, UNK (AS NEEDED)
     Route: 065
  5. LORAZEPAM [Suspect]
     Active Substance: LORAZEPAM
     Indication: Intensive care unit delirium
     Dosage: 8 MG, QD (AS NEEDED)
     Route: 065
  6. LORAZEPAM [Suspect]
     Active Substance: LORAZEPAM
     Dosage: UNK (1-10 MG/HR CONTINUOUS INFUSION)
     Route: 042
  7. GABAPENTIN [Suspect]
     Active Substance: GABAPENTIN
     Indication: Intensive care unit delirium
     Dosage: UNK
     Route: 065
  8. PROPOFOL [Suspect]
     Active Substance: PROPOFOL
     Indication: Intensive care unit delirium
     Dosage: UNK (CONTINUOUS INFUSION)
     Route: 065
  9. PROPOFOL [Suspect]
     Active Substance: PROPOFOL
     Dosage: UNK (MAINTAINED AT 50MCG/KG/MIN)
     Route: 065
  10. FENTANYL [Suspect]
     Active Substance: FENTANYL
     Indication: Intensive care unit delirium
     Dosage: UNK, (CONTINUOUS INFUSION)
     Route: 042
  11. FENTANYL [Suspect]
     Active Substance: FENTANYL
     Dosage: UNK (MAINTAINED AT 300MCG/HR)
     Route: 065
  12. FENTANYL [Suspect]
     Active Substance: FENTANYL
     Dosage: UNK (200 MCG/HR)
     Route: 062
  13. FENTANYL [Suspect]
     Active Substance: FENTANYL
     Dosage: UNK (300 MCG/HR)
     Route: 062
  14. HALOPERIDOL [Suspect]
     Active Substance: HALOPERIDOL
     Indication: Intensive care unit delirium
     Dosage: 6 MG, QD (AS NEEDED)
     Route: 065
  15. DIAZEPAM [Suspect]
     Active Substance: DIAZEPAM
     Indication: Intensive care unit delirium
     Dosage: 5 MG, TID
     Route: 065
  16. METHADONE [Suspect]
     Active Substance: METHADONE HYDROCHLORIDE
     Indication: Intensive care unit delirium
     Dosage: 10 MG, TID (ENTERAL)
  17. ALPRAZOLAM [Suspect]
     Active Substance: ALPRAZOLAM
     Indication: Intensive care unit delirium
     Dosage: UNK
     Route: 065
  18. ALPRAZOLAM [Suspect]
     Active Substance: ALPRAZOLAM
     Dosage: 1.25 MG, TID
     Route: 065
  19. CLONAZEPAM [Suspect]
     Active Substance: CLONAZEPAM
     Indication: Intensive care unit delirium
     Dosage: UNK
     Route: 065
  20. TRAZODONE [Suspect]
     Active Substance: TRAZODONE HYDROCHLORIDE
     Indication: Intensive care unit delirium
     Dosage: UNK
     Route: 065
  21. MIDAZOLAM [Suspect]
     Active Substance: MIDAZOLAM
     Indication: Intensive care unit delirium
     Dosage: UNK (1-10 MG/HR CONTINUOUS INFUSION)
     Route: 065
  22. DEXMEDETOMIDINE [Suspect]
     Active Substance: DEXMEDETOMIDINE
     Indication: Intensive care unit delirium
     Dosage: UNK (0.1-0.7 MCG/KG/HR CONTINUOUS INFUSION)
     Route: 042
  23. KETAMINE [Suspect]
     Active Substance: KETAMINE
     Indication: Intensive care unit delirium
     Dosage: UNK (1-10 MCG/KG/MIN CONTINUOUS INFUSION)
     Route: 042
  24. HYDROMORPHONE [Suspect]
     Active Substance: HYDROMORPHONE
     Indication: Intensive care unit delirium
     Dosage: 2 MG, UNK (AS NEEDED)
     Route: 065
  25. VALPROIC ACID [Concomitant]
     Active Substance: VALPROIC ACID
     Indication: Intensive care unit delirium
     Dosage: 250 MG, UNK

REACTIONS (6)
  - Posterior reversible encephalopathy syndrome [Recovering/Resolving]
  - Respiratory failure [Unknown]
  - Haemodynamic instability [Unknown]
  - Treatment failure [Unknown]
  - Drug ineffective for unapproved indication [Unknown]
  - Off label use [Unknown]
